FAERS Safety Report 20974146 (Version 4)
Quarter: 2022Q3

REPORT INFORMATION
  Report Type: Report from Study
  Country: US (occurrence: US)
  Receive Date: 20220617
  Receipt Date: 20220801
  Transmission Date: 20221027
  Serious: No
  Sender: FDA-Public Use
  Company Number: US-NOVARTISTESTPH-NVSC2022US138636

PATIENT
  Sex: Female

DRUGS (1)
  1. ENTRESTO [Suspect]
     Active Substance: SACUBITRIL\VALSARTAN
     Indication: Product used for unknown indication
     Dosage: 1 DOSAGE FORM, BID (49/51MG)
     Route: 048
     Dates: start: 202205

REACTIONS (10)
  - Sinus disorder [Unknown]
  - Nasopharyngitis [Unknown]
  - Pyrexia [Unknown]
  - Abdominal discomfort [Unknown]
  - Arthralgia [Unknown]
  - Weight fluctuation [Unknown]
  - Somnolence [Unknown]
  - Fall [Unknown]
  - Hypersensitivity [Unknown]
  - Headache [Unknown]
